FAERS Safety Report 6710200-3 (Version None)
Quarter: 2010Q2

REPORT INFORMATION
  Report Type: 
  Country: None (occurrence: None)
  Receive Date: 20100430
  Receipt Date: 20100421
  Transmission Date: 20101027
  Serious: Yes (Other)
  Sender: FDA-Public Use
  Company Number: 2010US001324

PATIENT
  Age: 76 Year
  Sex: Male
  Weight: 144 kg

DRUGS (11)
  1. VIBATIV [Suspect]
     Indication: DRUG USE FOR UNKNOWN INDICATION
     Dosage: 10 MG/KG, UNKNOWN/D, IV NOS
     Route: 042
     Dates: start: 20100414
  2. FENTANYL-100 [Concomitant]
  3. NEURONTIN [Concomitant]
  4. OXYCODONE AND ACETAMINOPHEN [Concomitant]
  5. WARFARIN SODIUM [Concomitant]
  6. IMDUR [Concomitant]
  7. COREG [Concomitant]
  8. ALTACE [Concomitant]
  9. FUROSEMIDE [Concomitant]
  10. ROCEPHIN [Concomitant]
  11. INVANZ (ERTAPENEM SODIUM) [Concomitant]

REACTIONS (2)
  - CYANOSIS [None]
  - ELECTROCARDIOGRAM ABNORMAL [None]
